FAERS Safety Report 24631709 (Version 3)
Quarter: 2025Q3

REPORT INFORMATION
  Report Type: Report from Study
  Country: ZA (occurrence: ZA)
  Receive Date: 20241118
  Receipt Date: 20250802
  Transmission Date: 20251021
  Serious: Yes (Other)
  Sender: ALEXION PHARMACEUTICALS
  Company Number: ZA-AstraZeneca-CH-00715954A

PATIENT
  Age: 15 Year
  Sex: Female

DRUGS (3)
  1. BUDESONIDE\FORMOTEROL FUMARATE DIHYDRATE [Suspect]
     Active Substance: BUDESONIDE\FORMOTEROL FUMARATE DIHYDRATE
     Indication: Asthma
  2. Neoloridin [Concomitant]
     Indication: Hypersensitivity
  3. UNSPECIFIED INGREDIENT [Suspect]
     Active Substance: UNSPECIFIED INGREDIENT

REACTIONS (4)
  - Syncope [Unknown]
  - Influenza [Unknown]
  - Pain [Recovered/Resolved]
  - Dyspnoea [Unknown]
